FAERS Safety Report 23072492 (Version 1)
Quarter: 2023Q4

REPORT INFORMATION
  Report Type: Spontaneous
  Country: US (occurrence: US)
  Receive Date: 20231017
  Receipt Date: 20231017
  Transmission Date: 20240110
  Serious: No
  Sender: FDA-Public Use
  Company Number: US-APOTEX-2023AP006997

PATIENT
  Sex: Female

DRUGS (1)
  1. SOTALOL [Suspect]
     Active Substance: SOTALOL
     Indication: Product used for unknown indication
     Dosage: 1 TABLET IN THE MORNING AND 1.5 TABLET IN THE EVENING
     Route: 065

REACTIONS (3)
  - Blood pressure decreased [Unknown]
  - Incorrect dose administered [Unknown]
  - Product design issue [Unknown]
